FAERS Safety Report 12071822 (Version 3)
Quarter: 2017Q1

REPORT INFORMATION
  Report Type: Report from Study
  Country: CA (occurrence: CA)
  Receive Date: 20160212
  Receipt Date: 20170313
  Transmission Date: 20170428
  Serious: Yes (Hospitalization, Other)
  Sender: FDA-Public Use
  Company Number: CA-ROCHE-1165466

PATIENT
  Age: 52 Year
  Sex: Male
  Weight: 72.6 kg

DRUGS (17)
  1. ACETAMINOPHEN. [Concomitant]
     Active Substance: ACETAMINOPHEN
     Indication: PREMEDICATION
     Route: 048
     Dates: start: 20100525
  2. METHYLPREDNISOLONE. [Concomitant]
     Active Substance: METHYLPREDNISOLONE
     Indication: PREMEDICATION
     Route: 042
     Dates: start: 20100525
  3. ROSUVASTATIN. [Concomitant]
     Active Substance: ROSUVASTATIN
     Route: 065
  4. QUETIAPINE. [Concomitant]
     Active Substance: QUETIAPINE
     Route: 065
  5. ASPIRIN. [Concomitant]
     Active Substance: ASPIRIN
     Route: 065
  6. BUPROPION. [Concomitant]
     Active Substance: BUPROPION
     Route: 065
  7. 5-AMINOSALICYLIC ACID [Concomitant]
     Active Substance: MESALAMINE
     Route: 065
  8. FOLIC ACID. [Concomitant]
     Active Substance: FOLIC ACID
  9. MYRBETRIQ [Concomitant]
     Active Substance: MIRABEGRON
     Route: 065
  10. DIPHENHYDRAMINE HCL [Concomitant]
     Active Substance: DIPHENHYDRAMINE HYDROCHLORIDE
     Indication: PREMEDICATION
     Route: 048
     Dates: start: 20100525
  11. DALTEPARIN [Concomitant]
     Active Substance: DALTEPARIN
     Indication: DEEP VEIN THROMBOSIS
  12. PANTOLOC [Concomitant]
     Active Substance: PANTOPRAZOLE SODIUM
     Route: 065
  13. RITUXAN [Suspect]
     Active Substance: RITUXIMAB
     Indication: RHEUMATOID ARTHRITIS
     Dosage: LAST DOSE RECEIVED ON 25/AUG/2014.
     Route: 042
     Dates: start: 20100525, end: 20160307
  14. NEXIUM [Concomitant]
     Active Substance: ESOMEPRAZOLE MAGNESIUM
  15. METHOTREXATE. [Concomitant]
     Active Substance: METHOTREXATE
     Route: 065
  16. TAMSULOSIN [Concomitant]
     Active Substance: TAMSULOSIN
     Route: 065
  17. SERTRALINE [Concomitant]
     Active Substance: SERTRALINE HYDROCHLORIDE
     Route: 065

REACTIONS (11)
  - Ligament sprain [Not Recovered/Not Resolved]
  - Pain [Unknown]
  - Herpes zoster [Recovered/Resolved]
  - Arthralgia [Not Recovered/Not Resolved]
  - Cellulitis [Recovered/Resolved]
  - Chills [Unknown]
  - Back pain [Not Recovered/Not Resolved]
  - Diplopia [Unknown]
  - Nervous system disorder [Not Recovered/Not Resolved]
  - Transient ischaemic attack [Unknown]
  - Nasopharyngitis [Recovering/Resolving]

NARRATIVE: CASE EVENT DATE: 201210
